FAERS Safety Report 25429938 (Version 1)
Quarter: 2025Q2

REPORT INFORMATION
  Report Type: Spontaneous
  Country: US (occurrence: US)
  Receive Date: 20250612
  Receipt Date: 20250612
  Transmission Date: 20250716
  Serious: No
  Sender: BRAINTREE
  Company Number: US-BRAINTREE LABORATORIES, INC.-2025BTE00221

PATIENT
  Age: 72 Year
  Sex: Male
  Weight: 95.254 kg

DRUGS (12)
  1. PEG-3350, SODIUM CHLORIDE, SODIUM BICARBONATE AND POTASSIUM CHLORIDE [Suspect]
     Active Substance: POLYETHYLENE GLYCOL 3350\POTASSIUM CHLORIDE\SODIUM BICARBONATE\SODIUM CHLORIDE
     Indication: Colonoscopy
     Route: 048
     Dates: start: 20250408, end: 20250408
  2. PEG-3350, SODIUM CHLORIDE, SODIUM BICARBONATE AND POTASSIUM CHLORIDE [Suspect]
     Active Substance: POLYETHYLENE GLYCOL 3350\POTASSIUM CHLORIDE\SODIUM BICARBONATE\SODIUM CHLORIDE
     Indication: Colostomy
  3. VITAMINS NOS [Concomitant]
     Active Substance: VITAMINS
  4. UNSPECIFIED IMMUNE HEALTH DIETARY SUPPLEMENT [Concomitant]
  5. PROBIOTICS IMMUNE DEFENSE HEALTH [Concomitant]
  6. VITAMINS [Concomitant]
     Active Substance: VITAMINS
  7. GINKGO [Concomitant]
     Active Substance: GINKGO
  8. HERBALS\TURMERIC [Concomitant]
     Active Substance: HERBALS\TURMERIC
  9. VITAMIN B12 [Concomitant]
     Active Substance: CYANOCOBALAMIN
  10. HERBALS\SAW PALMETTO [Concomitant]
     Active Substance: HERBALS\SAW PALMETTO
  11. GINSENG COMPLEX [AVENA SATIVA;COLA ACUMINATA;GLYCYRRHIZA GLABRA;PANAX [Concomitant]
  12. CLARITIN [Concomitant]
     Active Substance: LORATADINE

REACTIONS (5)
  - Eye pruritus [Not Recovered/Not Resolved]
  - Ear pruritus [Not Recovered/Not Resolved]
  - Cough [Not Recovered/Not Resolved]
  - Urticaria [Not Recovered/Not Resolved]
  - Drug hypersensitivity [Not Recovered/Not Resolved]

NARRATIVE: CASE EVENT DATE: 20250408
